FAERS Safety Report 11685019 (Version 1)
Quarter: 2015Q4

REPORT INFORMATION
  Report Type: Spontaneous
  Country: US (occurrence: US)
  Receive Date: 20151030
  Receipt Date: 20151030
  Transmission Date: 20160304
  Serious: Yes (Other)
  Sender: FDA-Public Use
  Company Number: US-AMGEN-USASP2015113655

PATIENT
  Age: 71 Year
  Sex: Male

DRUGS (1)
  1. ENBREL [Suspect]
     Active Substance: ETANERCEPT
     Indication: PSORIATIC ARTHROPATHY
     Dosage: 50 MG, UNK
     Route: 065
     Dates: start: 2013

REACTIONS (5)
  - Cardiac disorder [Unknown]
  - Cough [Unknown]
  - Upper-airway cough syndrome [Unknown]
  - Intentional product misuse [Unknown]
  - Sinusitis [Unknown]

NARRATIVE: CASE EVENT DATE: 201508
